FAERS Safety Report 5193675-3 (Version None)
Quarter: 2006Q4

REPORT INFORMATION
  Report Type: 
  Country: None (occurrence: None)
  Receive Date: 20061221
  Receipt Date: 20061204
  Transmission Date: 20070319
  Serious: Yes (Other)
  Sender: FDA-Public Use
  Company Number: 2006-328

PATIENT

DRUGS (2)
  1. CARBOPLATIN [Suspect]
     Indication: GANGLIONEUROBLASTOMA
  2. ETOPOSIDE [Suspect]
     Indication: GANGLIONEUROBLASTOMA

REACTIONS (1)
  - GROWTH HORMONE DEFICIENCY [None]
